FAERS Safety Report 8932628 (Version 2)
Quarter: 2012Q4

REPORT INFORMATION
  Report Type: 
  Country: US (occurrence: US)
  Receive Date: 20121129
  Receipt Date: 20121130
  Transmission Date: 20130627
  Serious: No
  Sender: FDA-Public Use
  Company Number: US-PFIZER INC-2012296176

PATIENT

DRUGS (1)
  1. ATORVASTATIN [Suspect]
     Dosage: 20 mg, UNK

REACTIONS (1)
  - Panic attack [Unknown]
